FAERS Safety Report 21970998 (Version 1)
Quarter: 2023Q1

REPORT INFORMATION
  Report Type: Report from Study
  Country: US (occurrence: US)
  Receive Date: 20230209
  Receipt Date: 20230209
  Transmission Date: 20230418
  Serious: Yes (Other)
  Sender: FDA-Public Use
  Company Number: US-ABBVIE-4299648

PATIENT
  Age: 56 Year
  Sex: Male

DRUGS (1)
  1. RINVOQ [Suspect]
     Active Substance: UPADACITINIB
     Indication: Inflammation
     Route: 048
     Dates: start: 20230203

REACTIONS (4)
  - Ostomy bag placement [Unknown]
  - Flatulence [Not Recovered/Not Resolved]
  - Nausea [Not Recovered/Not Resolved]
  - Infrequent bowel movements [Unknown]

NARRATIVE: CASE EVENT DATE: 20230204
